FAERS Safety Report 4851542-6 (Version None)
Quarter: 2005Q4

REPORT INFORMATION
  Report Type: 
  Country: None (occurrence: None)
  Receive Date: 20051212
  Receipt Date: 20051130
  Transmission Date: 20060501
  Serious: Yes (Hospitalization)
  Sender: FDA-Public Use
  Company Number: FR-ROCHE-427075

PATIENT
  Age: 43 Year
  Sex: Female

DRUGS (2)
  1. RIBAVIRIN [Suspect]
     Route: 065
     Dates: start: 20020115, end: 20020915
  2. PEG-INTERFERON ALFA 2B [Suspect]
     Route: 065
     Dates: start: 20020115, end: 20020915

REACTIONS (14)
  - ABDOMINAL PAIN [None]
  - ALOPECIA [None]
  - C-REACTIVE PROTEIN INCREASED [None]
  - COLITIS ULCERATIVE [None]
  - CROHN'S DISEASE [None]
  - DRUG TOLERANCE DECREASED [None]
  - GENERAL PHYSICAL HEALTH DETERIORATION [None]
  - INFLAMMATION [None]
  - INTESTINAL STENOSIS [None]
  - LEUKOCYTOSIS [None]
  - PANCREATITIS ACUTE [None]
  - SMALL INTESTINAL STENOSIS [None]
  - VOMITING [None]
  - WEIGHT DECREASED [None]
